FAERS Safety Report 14789104 (Version 1)
Quarter: 2018Q2

REPORT INFORMATION
  Report Type: Report from Study
  Country: US (occurrence: US)
  Receive Date: 20180423
  Receipt Date: 20180423
  Transmission Date: 20180711
  Serious: Yes (Hospitalization)
  Sender: FDA-Public Use
  Company Number: PHEH2018US013877

PATIENT
  Sex: Male

DRUGS (3)
  1. OMNITROPE [Suspect]
     Active Substance: SOMATROPIN
     Dosage: 0.6 MG, QD
     Route: 058
  2. OMNITROPE [Suspect]
     Active Substance: SOMATROPIN
     Dosage: 0.7 MG, QD
     Route: 058
  3. OMNITROPE [Suspect]
     Active Substance: SOMATROPIN
     Indication: HYPOPITUITARISM
     Dosage: 0.5 MG, QD
     Route: 058
     Dates: start: 20090601

REACTIONS (8)
  - Alcohol abuse [Unknown]
  - Asthenia [Unknown]
  - Intracranial aneurysm [Unknown]
  - Vomiting [Unknown]
  - Libido decreased [Unknown]
  - Cerebellar stroke [Unknown]
  - Gait disturbance [Unknown]
  - Concussion [Unknown]

NARRATIVE: CASE EVENT DATE: 20141101
